FAERS Safety Report 20351143 (Version 3)
Quarter: 2022Q1

REPORT INFORMATION
  Report Type: Spontaneous
  Country: US (occurrence: US)
  Receive Date: 20220119
  Receipt Date: 20220331
  Transmission Date: 20220423
  Serious: Yes (Hospitalization, Other)
  Sender: FDA-Public Use
  Company Number: US-GLAXOSMITHKLINE-US2022AMR006275

PATIENT
  Sex: Female

DRUGS (3)
  1. FLOLAN [Suspect]
     Active Substance: EPOPROSTENOL SODIUM
     Indication: Pulmonary hypertension
     Dosage: 20 NG/KG/MIN, CO PUMP RATE: 67 ML/DAY
     Dates: start: 20201113
  2. GLYCINE\MANNITOL\SODIUM CHLORIDE [Suspect]
     Active Substance: GLYCINE\MANNITOL\SODIUM CHLORIDE
     Indication: Pulmonary hypertension
     Dosage: UNK
     Dates: start: 20201113
  3. OPSUMIT [Suspect]
     Active Substance: MACITENTAN
     Indication: Product used for unknown indication
     Dosage: UNK
     Dates: start: 20220124

REACTIONS (4)
  - Hospitalisation [Unknown]
  - Dyspnoea [Unknown]
  - Malaise [Unknown]
  - Vascular device infection [Unknown]
